FAERS Safety Report 21884717 (Version 2)
Quarter: 2023Q1

REPORT INFORMATION
  Report Type: Report from Study
  Country: US (occurrence: US)
  Receive Date: 20230119
  Receipt Date: 20230124
  Transmission Date: 20230418
  Serious: No
  Sender: FDA-Public Use
  Company Number: US-002147023-NVSC2023US012285

PATIENT
  Age: 52 Year
  Sex: Female

DRUGS (1)
  1. GLEEVEC [Suspect]
     Active Substance: IMATINIB MESYLATE
     Indication: Chronic myeloid leukaemia
     Dosage: UNK
     Route: 065
     Dates: start: 201001, end: 201008

REACTIONS (7)
  - Medial tibial stress syndrome [Recovering/Resolving]
  - Feeling abnormal [Recovering/Resolving]
  - Poor quality sleep [Recovering/Resolving]
  - Thyroid disorder [Recovering/Resolving]
  - Periorbital swelling [Recovering/Resolving]
  - Muscle spasms [Recovering/Resolving]
  - Gout [Recovering/Resolving]
